FAERS Safety Report 6014556-9 (Version None)
Quarter: 2008Q4

REPORT INFORMATION
  Report Type: 
  Country: None (occurrence: None)
  Receive Date: 20081219
  Receipt Date: 20080819
  Transmission Date: 20090506
  Serious: No
  Sender: FDA-Public Use
  Company Number: A0743288A

PATIENT
  Age: 77 Year
  Sex: Male

DRUGS (9)
  1. AVODART [Suspect]
     Dosage: .5MG THREE TIMES PER WEEK
     Route: 048
     Dates: start: 20080815
  2. ASPIRIN [Concomitant]
  3. UNKNOWN MEDICATION [Concomitant]
  4. ATENOLOL [Concomitant]
  5. AMLODIPINE [Concomitant]
  6. ZOCOR [Concomitant]
  7. FUROSEMIDE [Concomitant]
  8. ALLOPURINOL [Concomitant]
  9. COLCHICINE [Concomitant]

REACTIONS (1)
  - MEDICATION RESIDUE [None]
